FAERS Safety Report 19466466 (Version 1)
Quarter: 2021Q2

REPORT INFORMATION
  Report Type: Spontaneous
  Country: US (occurrence: US)
  Receive Date: 20210628
  Receipt Date: 20210628
  Transmission Date: 20210717
  Serious: Yes (Hospitalization)
  Sender: FDA-Public Use
  Company Number: US-AUROBINDO-AUR-APL-2021-026193

PATIENT
  Age: 20 Year
  Sex: Female

DRUGS (1)
  1. PROGESTERONE. [Suspect]
     Active Substance: PROGESTERONE
     Indication: PREMATURE LABOUR
     Dosage: UNK
     Route: 067

REACTIONS (6)
  - Rash pruritic [Recovered/Resolved]
  - Autoimmune dermatitis [Recovered/Resolved]
  - Blister [Recovered/Resolved]
  - Maternal exposure during pregnancy [Unknown]
  - Pustule [Recovered/Resolved]
  - Scab [Recovered/Resolved]
